FAERS Safety Report 21445568 (Version 2)
Quarter: 2022Q4

REPORT INFORMATION
  Report Type: Spontaneous
  Country: US (occurrence: US)
  Receive Date: 20221012
  Receipt Date: 20221014
  Transmission Date: 20230113
  Serious: No
  Sender: FDA-Public Use
  Company Number: US-JNJFOC-20220963252

PATIENT
  Sex: Female
  Weight: 70 kg

DRUGS (1)
  1. SIMPONI ARIA [Suspect]
     Active Substance: GOLIMUMAB
     Indication: Rheumatoid arthritis
     Route: 042

REACTIONS (1)
  - Incorrect dose administered [Unknown]

NARRATIVE: CASE EVENT DATE: 20220930
